FAERS Safety Report 16162016 (Version 1)
Quarter: 2019Q2

REPORT INFORMATION
  Report Type: Spontaneous
  Country: CN (occurrence: CN)
  Receive Date: 20190405
  Receipt Date: 20190405
  Transmission Date: 20190711
  Serious: Yes (Other)
  Sender: FDA-Public Use
  Company Number: CN-ROCHE-2292053

PATIENT

DRUGS (15)
  1. AVASTIN [Suspect]
     Active Substance: BEVACIZUMAB
     Indication: METASTASES TO LIVER
  2. CALCIUM FOLINATE [Concomitant]
     Active Substance: LEUCOVORIN CALCIUM
     Indication: METASTASES TO LIVER
     Dosage: AT DAY 1
     Route: 065
     Dates: start: 20150319
  3. 5-FLUOROURACIL [Concomitant]
     Active Substance: FLUOROURACIL
     Dosage: CONTINUOUS INTRAVENOUS INFUSION 46H
     Route: 042
     Dates: start: 20150319
  4. BAN ZHI LIAN [Concomitant]
  5. OXALIPLATIN. [Concomitant]
     Active Substance: OXALIPLATIN
     Indication: ADENOCARCINOMA OF COLON
     Dosage: AT DAY 1
     Route: 065
     Dates: start: 20141011
  6. OXALIPLATIN. [Concomitant]
     Active Substance: OXALIPLATIN
     Indication: METASTASES TO LIVER
     Dosage: AT DAY 1
     Route: 065
     Dates: start: 20150319
  7. CALCIUM FOLINATE [Concomitant]
     Active Substance: LEUCOVORIN CALCIUM
     Indication: ADENOCARCINOMA OF COLON
     Dosage: AT DAY 1
     Route: 065
     Dates: start: 20141011
  8. 5-FLUOROURACIL [Concomitant]
     Active Substance: FLUOROURACIL
     Indication: ADENOCARCINOMA OF COLON
     Dosage: AT DAY 1
     Route: 065
     Dates: start: 20141011
  9. 5-FLUOROURACIL [Concomitant]
     Active Substance: FLUOROURACIL
     Indication: METASTASES TO LIVER
     Dosage: CONTINUOUS INTRAVENOUS INFUSION 46H
     Route: 042
     Dates: start: 20141011
  10. ASTRAGALUS MEMBRANACEUS [Concomitant]
     Active Substance: ASTRAGALUS PROPINQUUS ROOT\HERBALS
  11. AVASTIN [Suspect]
     Active Substance: BEVACIZUMAB
     Indication: ADENOCARCINOMA OF COLON
     Dosage: AT DAY1
     Route: 065
     Dates: start: 20141011
  12. 5-FLUOROURACIL [Concomitant]
     Active Substance: FLUOROURACIL
     Dosage: AT DAY 1
     Route: 065
     Dates: start: 20150319
  13. ZEDOARY [Concomitant]
  14. SCORPION VENOM [Concomitant]
  15. CODONOPSIS PILOSULA [Concomitant]
     Active Substance: CODONOPSIS PILOSULA ROOT\HERBALS

REACTIONS (2)
  - Bone marrow failure [Recovered/Resolved]
  - Platelet count decreased [Recovered/Resolved]
